FAERS Safety Report 15074289 (Version 2)
Quarter: 2018Q3

REPORT INFORMATION
  Report Type: Report from Study
  Country: US (occurrence: US)
  Receive Date: 20180627
  Receipt Date: 20180702
  Transmission Date: 20181010
  Serious: Yes (Death, Hospitalization)
  Sender: FDA-Public Use
  Company Number: US-EISAI MEDICAL RESEARCH-EC-2018-041142

PATIENT
  Sex: Female
  Weight: 105 kg

DRUGS (17)
  1. LEXAPRO [Concomitant]
     Active Substance: ESCITALOPRAM OXALATE
  2. VITAMIN D2 [Concomitant]
     Active Substance: ERGOCALCIFEROL
  3. ZOCOR [Concomitant]
     Active Substance: SIMVASTATIN
  4. LOTENSIN [Concomitant]
     Active Substance: BENAZEPRIL HYDROCHLORIDE
  5. LOPRESSOR [Concomitant]
     Active Substance: METOPROLOL TARTRATE
  6. ALLOPURINOL. [Concomitant]
     Active Substance: ALLOPURINOL
  7. OSCAL [Concomitant]
     Active Substance: CALCIUM CARBONATE
  8. PREVACID [Concomitant]
     Active Substance: LANSOPRAZOLE
  9. REQUIP [Concomitant]
     Active Substance: ROPINIROLE HYDROCHLORIDE
  10. ACETAMINOPHEN. [Concomitant]
     Active Substance: ACETAMINOPHEN
  11. SYNTHROID [Concomitant]
     Active Substance: LEVOTHYROXINE SODIUM
  12. ISOSORBIDE MONONITRATE. [Concomitant]
     Active Substance: ISOSORBIDE MONONITRATE
  13. LENVIMA [Suspect]
     Active Substance: LENVATINIB
     Indication: THYROID CANCER
     Route: 048
     Dates: start: 20180525, end: 201806
  14. NORVASC [Concomitant]
     Active Substance: AMLODIPINE BESYLATE
  15. METHYLPREDNISOLONE. [Concomitant]
     Active Substance: METHYLPREDNISOLONE
  16. ASPIRIN. [Concomitant]
     Active Substance: ASPIRIN
  17. LASIX [Concomitant]
     Active Substance: FUROSEMIDE

REACTIONS (6)
  - Nausea [Not Recovered/Not Resolved]
  - Death [Fatal]
  - Dehydration [Unknown]
  - Blood pressure inadequately controlled [Not Recovered/Not Resolved]
  - Renal disorder [Not Recovered/Not Resolved]
  - Oxygen saturation abnormal [Not Recovered/Not Resolved]

NARRATIVE: CASE EVENT DATE: 2018
